FAERS Safety Report 7194740-1 (Version None)
Quarter: 2010Q4

REPORT INFORMATION
  Report Type: 
  Country: None (occurrence: None)
  Receive Date: 20101223
  Receipt Date: 20100916
  Transmission Date: 20110411
  Serious: No
  Sender: FDA-Public Use
  Company Number: US-AMGEN-TCS439111

PATIENT

DRUGS (1)
  1. ENBREL [Suspect]
     Indication: RHEUMATOID ARTHRITIS
     Dosage: 25 MG, 2 TIMES/WK
     Route: 058
     Dates: start: 20030401, end: 20100902

REACTIONS (5)
  - OPEN WOUND [None]
  - RASH PAPULAR [None]
  - SKIN BURNING SENSATION [None]
  - SKIN IRRITATION [None]
  - WOUND COMPLICATION [None]
